FAERS Safety Report 25586391 (Version 1)
Quarter: 2025Q3

REPORT INFORMATION
  Report Type: Spontaneous
  Country: US (occurrence: None)
  Receive Date: 20250719
  Receipt Date: 20250719
  Transmission Date: 20251020
  Serious: Yes (Hospitalization)
  Sender: FDA-CTU
  Company Number: None

PATIENT
  Age: 60 Year
  Sex: Female
  Weight: 78.75 kg

DRUGS (1)
  1. HYRIMOZ [Suspect]
     Active Substance: ADALIMUMAB-ADAZ
     Indication: Colitis ulcerative
     Dates: start: 20250703, end: 20250708

REACTIONS (4)
  - Dizziness [None]
  - Nausea [None]
  - Tinnitus [None]
  - Balance disorder [None]

NARRATIVE: CASE EVENT DATE: 20250708
